FAERS Safety Report 20977731 (Version 1)
Quarter: 2022Q2

REPORT INFORMATION
  Report Type: Spontaneous
  Country: US (occurrence: US)
  Receive Date: 20220618
  Receipt Date: 20220618
  Transmission Date: 20220720
  Serious: No
  Sender: FDA-Public Use
  Company Number: US-UNITED THERAPEUTICS-UNT-2022-012325

PATIENT
  Age: 38 Year
  Sex: Female
  Weight: 97.052 kg

DRUGS (4)
  1. REMODULIN [Suspect]
     Active Substance: TREPROSTINIL
     Indication: Pulmonary arterial hypertension
     Dosage: UNK, CONTINUING
     Route: 058
     Dates: start: 20210730
  2. REMODULIN [Suspect]
     Active Substance: TREPROSTINIL
     Dosage: 0.050 ?G/KG, CONTINUING (PRE-FILLED WITH 2.8 ML PER CASSETTE AT THE RATE OF 30 MCL PER HOUR)
     Route: 058
  3. REMODULIN [Suspect]
     Active Substance: TREPROSTINIL
     Dosage: UNK, CONTINUING
     Route: 058
  4. SILDENAFIL [Concomitant]
     Active Substance: SILDENAFIL
     Indication: Product used for unknown indication
     Dosage: UNK
     Route: 065

REACTIONS (9)
  - Device leakage [Unknown]
  - Device wireless communication issue [Unknown]
  - Device electrical finding [Unknown]
  - Device leakage [Unknown]
  - Device leakage [Unknown]
  - Device leakage [Unknown]
  - Device leakage [Unknown]
  - Chest pain [Unknown]
  - Dehydration [Unknown]

NARRATIVE: CASE EVENT DATE: 20220603
